FAERS Safety Report 5929102-5 (Version None)
Quarter: 2008Q4

REPORT INFORMATION
  Report Type: 
  Country: None (occurrence: None)
  Receive Date: 20081024
  Receipt Date: 20081021
  Transmission Date: 20090506
  Serious: Yes (Death, Hospitalization)
  Sender: FDA-Public Use
  Company Number: US-AVENTIS-200815751US

PATIENT
  Sex: Female
  Weight: 74.84 kg

DRUGS (13)
  1. LANTUS [Suspect]
     Route: 058
     Dates: start: 20080801
  2. LANTUS [Suspect]
     Route: 058
     Dates: end: 20080801
  3. OPTICLIK (INSULIN INJECTION PEN) [Suspect]
  4. MINOXIDIL [Suspect]
     Indication: HYPERTENSION
     Dosage: DOSE: UNK
  5. FUROSEMIDE [Concomitant]
     Dosage: DOSE: UNK
  6. VASOTEC                            /00935901/ [Concomitant]
     Dosage: DOSE: UNK
  7. DIOVANE [Concomitant]
     Dosage: DOSE: UNK
  8. COREG [Concomitant]
     Dosage: DOSE: UNK
  9. ASPIRIN [Concomitant]
  10. NEXIUM [Concomitant]
     Dosage: DOSE: UNK
  11. LIPITOR [Concomitant]
     Dosage: DOSE: UNK
  12. POTASSIUM CHLORIDE [Concomitant]
  13. CATAPRES                           /00171101/ [Concomitant]
     Indication: HYPERTENSION
     Dosage: DOSE: UNK
     Route: 003

REACTIONS (4)
  - DEATH [None]
  - HYPERTENSION [None]
  - NAUSEA [None]
  - VOMITING [None]
